FAERS Safety Report 8672231 (Version 4)
Quarter: 2013Q1

REPORT INFORMATION
  Report Type: Spontaneous
  Country: US (occurrence: US)
  Receive Date: 20120719
  Receipt Date: 20130109
  Transmission Date: 20140127
  Serious: Yes (Hospitalization, Other)
  Sender: FDA-Public Use
  Company Number: US-PFIZER INC-2012170607

PATIENT
  Age: 59 Year
  Sex: Female
  Weight: 75.28 kg

DRUGS (10)
  1. LYRICA [Suspect]
     Indication: NEURALGIA
     Dosage: 150 MG, 3X/DAY
     Route: 048
     Dates: start: 20120131
  2. LYRICA [Suspect]
     Indication: RADICULOPATHY
  3. BENADRYL [Concomitant]
     Indication: HYPERSENSITIVITY
     Dosage: UNK
  4. DEPAKOTE [Concomitant]
     Indication: MIGRAINE
     Dosage: UNK
  5. ATIVAN [Concomitant]
     Indication: SLEEP DISORDER
     Dosage: 0.5 MG, 3X/DAY
  6. MORPHINE [Concomitant]
     Indication: PAIN
     Dosage: 30 MG, 3X/DAY
  7. PRILOSEC [Concomitant]
     Dosage: 20 MG, UNK
  8. CITALOPRAM [Concomitant]
     Dosage: 20 MG, 1X/DAY
  9. OMEPRAZOLE [Concomitant]
     Dosage: UNK
  10. METFORMIN [Concomitant]
     Dosage: UNK

REACTIONS (7)
  - Diabetic foot infection [Recovered/Resolved]
  - Gait disturbance [Unknown]
  - Blood cholesterol increased [Unknown]
  - Blood glucose increased [Unknown]
  - Vitamin D decreased [Unknown]
  - Pain [Unknown]
  - Drug effect incomplete [Unknown]
